FAERS Safety Report 9592279 (Version 1)
Quarter: 2013Q4

REPORT INFORMATION
  Report Type: Other
  Country: US (occurrence: US)
  Receive Date: 20131004
  Receipt Date: 20131004
  Transmission Date: 20140711
  Serious: Yes (Other)
  Sender: FDA-Public Use
  Company Number: US-BRISTOL-MYERS SQUIBB COMPANY-19517978

PATIENT
  Age: 29 Year
  Sex: Female

DRUGS (3)
  1. ATAZANAVIR [Suspect]
     Indication: HIV INFECTION
  2. RITONAVIR [Interacting]
     Indication: HIV INFECTION
  3. FLUTICASONE PROPIONATE [Interacting]
     Indication: HIV INFECTION
     Dosage: DOSE REDUCED TO:200 MICROGRAM?INHALED 500
     Route: 055

REACTIONS (5)
  - Weight increased [Recovered/Resolved]
  - Erythema [Recovered/Resolved]
  - Myalgia [Recovered/Resolved]
  - Amenorrhoea [Recovered/Resolved]
  - Drug interaction [Recovered/Resolved]
